FAERS Safety Report 11699258 (Version 2)
Quarter: 2015Q4

REPORT INFORMATION
  Report Type: Spontaneous
  Country: US (occurrence: US)
  Receive Date: 20151104
  Receipt Date: 20151113
  Transmission Date: 20160304
  Serious: No
  Sender: FDA-Public Use
  Company Number: US-009507513-1510USA006075

PATIENT
  Age: 46 Year
  Sex: Female

DRUGS (15)
  1. VICTRELIS [Suspect]
     Active Substance: BOCEPREVIR
     Indication: CHRONIC HEPATITIS C
     Dosage: 4 CAPSULES 3 TIMES A DAY (EVERY 7-8 HOURS)
     Route: 048
     Dates: start: 20130411
  2. COPEGUS [Suspect]
     Active Substance: RIBAVIRIN
     Dosage: 600 MG IN THE MORNING, 400 MG IN THE EVENING
     Route: 048
  3. HALOPERIDOL. [Concomitant]
     Active Substance: HALOPERIDOL
     Dosage: 2 MG (1 MG, 2 IN ONE DAY)
     Route: 048
  4. PEGASYS [Suspect]
     Active Substance: PEGINTERFERON ALFA-2A
     Dosage: 135 MICROGRAM, QW
     Route: 058
     Dates: start: 20130411
  5. COPEGUS [Suspect]
     Active Substance: RIBAVIRIN
     Dosage: 400 MG, TID
     Route: 048
     Dates: start: 2013
  6. ALBUTEROL SULFATE. [Concomitant]
     Active Substance: ALBUTEROL SULFATE
     Dosage: 3 TIMES EVERY DAY, NEBULIZATION ROUTE (3 ML, 1 IN 8 HR)
     Route: 045
     Dates: start: 20130702
  7. ABILIFY [Concomitant]
     Active Substance: ARIPIPRAZOLE
     Dosage: 2 TIMES EVERY DAY (10 MG, 1 IN 12 HR)
     Route: 048
  8. ALBUTEROL SULFATE. [Concomitant]
     Active Substance: ALBUTEROL SULFATE
     Dosage: 3 TIMES EVERY DAY, NEBULIZATION ROUTE (3 ML, 1 IN 8 HR)
     Route: 045
     Dates: start: 20130513
  9. PEGASYS [Suspect]
     Active Substance: PEGINTERFERON ALFA-2A
     Indication: CHRONIC HEPATITIS C
     Dosage: 180 MICROGRAM, QW
     Route: 058
  10. COPEGUS [Suspect]
     Active Substance: RIBAVIRIN
     Indication: CHRONIC HEPATITIS C
     Dosage: 600 MG, BID
     Route: 048
  11. SYMBICORT [Concomitant]
     Active Substance: BUDESONIDE\FORMOTEROL FUMARATE DIHYDRATE
     Dosage: 2 PUFFS, 2 TIMES EVERY DAY, IN MORNING AND EVENING (2 IN 12 HR)
  12. CELEXA [Concomitant]
     Active Substance: CITALOPRAM HYDROBROMIDE
     Dosage: 20 MG, 1 IN ONE DAY
     Route: 048
  13. CLONAZEPAM. [Suspect]
     Active Substance: CLONAZEPAM
     Indication: PRODUCT USED FOR UNKNOWN INDICATION
     Dosage: 0.5 G, AS NEEDED
     Route: 048
  14. ALBUTEROL SULFATE. [Concomitant]
     Active Substance: ALBUTEROL SULFATE
     Dosage: 3 TIMES EVERY DAY, INHALATION ROUTE (3 ML, 1 IN 8 HR)
     Route: 055
     Dates: start: 20130610
  15. PRAZOSIN [Concomitant]
     Active Substance: PRAZOSIN
     Dosage: EVERY BEDTIME (1 MG, 2 IN ONE DAY)
     Route: 048

REACTIONS (11)
  - Stress [Unknown]
  - Haemoglobin decreased [Unknown]
  - Nausea [Unknown]
  - Vomiting [Unknown]
  - Drug dose omission [Unknown]
  - Disturbance in attention [Unknown]
  - Haematocrit decreased [Unknown]
  - Feeling of despair [Unknown]
  - Haemoglobin decreased [Unknown]
  - Haematocrit decreased [Unknown]
  - Decreased appetite [Unknown]

NARRATIVE: CASE EVENT DATE: 2013
